FAERS Safety Report 18544193 (Version 3)
Quarter: 2021Q1

REPORT INFORMATION
  Report Type: Report from Study
  Country: None (occurrence: US)
  Receive Date: 20201125
  Receipt Date: 20210303
  Transmission Date: 20210419
  Serious: No
  Sender: FDA-Public Use
  Company Number: US-BIOVITRUM-2020US6598

PATIENT
  Sex: Female

DRUGS (7)
  1. CALCIUM [Concomitant]
     Active Substance: CALCIUM
  2. KINERET [Suspect]
     Active Substance: ANAKINRA
     Indication: PRODUCT USED FOR UNKNOWN INDICATION
     Route: 058
  3. GABAPENTIN. [Concomitant]
     Active Substance: GABAPENTIN
  4. CIPROFLOXACIN. [Concomitant]
     Active Substance: CIPROFLOXACIN
  5. MAGNESIUM [Concomitant]
     Active Substance: MAGNESIUM
  6. CYMBALTA [Concomitant]
     Active Substance: DULOXETINE HYDROCHLORIDE
  7. MULTIVITAMINS [Concomitant]
     Active Substance: VITAMINS

REACTIONS (8)
  - Headache [Unknown]
  - Rash macular [Unknown]
  - Candida infection [Unknown]
  - Dyspnoea [Unknown]
  - Injection site rash [Unknown]
  - Rash [Unknown]
  - Injection site erythema [Unknown]
  - Sinusitis [Unknown]
